FAERS Safety Report 12161394 (Version 1)
Quarter: 2016Q1

REPORT INFORMATION
  Report Type: Spontaneous
  Country: DE (occurrence: DE)
  Receive Date: 20160308
  Receipt Date: 20160308
  Transmission Date: 20160526
  Serious: Yes (Other)
  Sender: FDA-Public Use
  Company Number: DE-009507513-1603DEU000665

PATIENT
  Age: 1 Day
  Sex: Male
  Weight: 3.45 kg

DRUGS (5)
  1. MIRTAZAPINE. [Suspect]
     Active Substance: MIRTAZAPINE
     Dosage: 7.5 MG, QD
     Route: 064
     Dates: start: 20150215, end: 20151111
  2. TIANEPTINE SODIUM [Suspect]
     Active Substance: TIANEPTINE SODIUM
     Dosage: 12.5 MG, QD
     Route: 064
     Dates: start: 20150215, end: 20151111
  3. METOHEXAL [Concomitant]
     Active Substance: METOPROLOL SUCCINATE
     Dosage: 71.25 [MG/D(23.75-0-47.5) ]/23.75MG - 0 -47.5MG PER DAY
     Route: 064
     Dates: start: 20150215, end: 20151111
  4. FOLIC ACID. [Concomitant]
     Active Substance: FOLIC ACID
     Dosage: PROBABLY UNTIL DELIVERY; HOWEVER, DURATION OF INTAKE WAS NOT TOLD.
     Route: 064
  5. CITALOPRAM [Suspect]
     Active Substance: CITALOPRAM HYDROBROMIDE
     Dosage: 10 MG, QD
     Route: 064
     Dates: start: 20150215, end: 20151111

REACTIONS (1)
  - Respiratory disorder neonatal [Recovered/Resolved]

NARRATIVE: CASE EVENT DATE: 20151111
